FAERS Safety Report 6740577-4 (Version None)
Quarter: 2010Q2

REPORT INFORMATION
  Report Type: 
  Country: None (occurrence: None)
  Receive Date: 20100525
  Receipt Date: 20100525
  Transmission Date: 20101027
  Serious: Yes (Hospitalization)
  Sender: FDA-Public Use
  Company Number: DE-EISAI INC.-E2020-06653-CLI-DE

PATIENT
  Sex: Female

DRUGS (7)
  1. ARICEPT [Suspect]
     Indication: DEMENTIA
     Route: 048
     Dates: start: 20090101, end: 20090101
  2. ARICEPT [Suspect]
     Route: 048
     Dates: start: 20090901
  3. ACTRAPID (INSULIN HUMAN) [Concomitant]
     Route: 058
  4. LEVEMIR (INSULIN DETERMIR) [Concomitant]
     Dosage: 46 IU SC AND 3 TABLETS
     Route: 058
  5. BISOPROLOL [Concomitant]
     Dosage: 5MG AND 10MG
  6. RAMIPRIL [Concomitant]
     Dosage: 5MG AND 5/25MG
  7. ASPIRIN [Concomitant]
     Dosage: 100MG

REACTIONS (1)
  - BREAST CANCER [None]
